FAERS Safety Report 15762659 (Version 1)
Quarter: 2018Q4

REPORT INFORMATION
  Report Type: Spontaneous
  Country: CH (occurrence: CH)
  Receive Date: 20181226
  Receipt Date: 20181226
  Transmission Date: 20190205
  Serious: Yes (Hospitalization)
  Sender: FDA-Public Use
  Company Number: CH-PFIZER INC-2018522007

PATIENT
  Age: 34 Year
  Sex: Male

DRUGS (11)
  1. XANAX [Suspect]
     Active Substance: ALPRAZOLAM
     Dosage: 4 MG, DAILY(1 MG 2X/D AND 2 MG 1X/D )
     Route: 048
     Dates: end: 20181201
  2. DAFALGAN [Concomitant]
     Active Substance: ACETAMINOPHEN
     Dosage: 1 G, UNK
  3. CYMBALTA [Concomitant]
     Active Substance: DULOXETINE HYDROCHLORIDE
     Dosage: UNK
  4. RISPERIDONE. [Suspect]
     Active Substance: RISPERIDONE
     Dosage: UNK (6-8 MG)
     Route: 048
     Dates: start: 20181203
  5. GABAPENTIN. [Concomitant]
     Active Substance: GABAPENTIN
     Dosage: UNK
  6. RITALINE [Suspect]
     Active Substance: METHYLPHENIDATE HYDROCHLORIDE
     Dosage: 100 MG, 1X/DAY
     Route: 048
     Dates: start: 201805, end: 20181203
  7. RISPERIDONE. [Suspect]
     Active Substance: RISPERIDONE
     Indication: ANXIETY
     Dosage: 2 MG, 1X/DAY
     Route: 048
  8. DORMICUM [MIDAZOLAM HYDROCHLORIDE] [Concomitant]
     Dosage: UNK, AS NECESSARY
     Dates: start: 20181203, end: 20181203
  9. AKINETON [BIPERIDEN LACTATE] [Concomitant]
     Dates: start: 20181203, end: 20181203
  10. ANXIOLIT [Concomitant]
     Active Substance: OXAZEPAM
     Dosage: 15 MG EVERY 4 HOURS
  11. RITALINE [Suspect]
     Active Substance: METHYLPHENIDATE HYDROCHLORIDE
     Dosage: 10 MG, 3X/DAY
     Route: 048
     Dates: start: 20181203

REACTIONS (10)
  - Hypertonia [Recovered/Resolved]
  - Withdrawal syndrome [Recovered/Resolved]
  - Loss of consciousness [Recovered/Resolved]
  - Epilepsy [Recovered/Resolved]
  - Sinus tachycardia [Recovered/Resolved]
  - Hallucination, visual [Unknown]
  - Overdose [Recovered/Resolved]
  - Blood creatine phosphokinase increased [Unknown]
  - Tachycardia [Recovered/Resolved]
  - Hyperhidrosis [Unknown]

NARRATIVE: CASE EVENT DATE: 201805
